FAERS Safety Report 4609561-0 (Version None)
Quarter: 2005Q1

REPORT INFORMATION
  Report Type: 
  Country: None (occurrence: None)
  Receive Date: 20050314
  Receipt Date: 20050314
  Transmission Date: 20050727
  Serious: Yes (Other)
  Sender: FDA-Public Use
  Company Number: None

PATIENT
  Age: 45 Year
  Sex: Female

DRUGS (1)
  1. TRAMADOL HCL [Suspect]
     Indication: ARTHROPATHY
     Dosage: 50 MG

REACTIONS (2)
  - NAUSEA [None]
  - THERAPEUTIC PRODUCT INEFFECTIVE [None]
